FAERS Safety Report 8132853-8 (Version None)
Quarter: 2012Q1

REPORT INFORMATION
  Report Type: 
  Country: None (occurrence: None)
  Receive Date: 20120208
  Receipt Date: 20120127
  Transmission Date: 20120608
  Serious: Yes (Death)
  Sender: FDA-Public Use
  Company Number: 1000027434

PATIENT
  Age: 66 Year
  Sex: Male
  Weight: 48 kg

DRUGS (7)
  1. SYMBICORT [Concomitant]
  2. SPIRIVA [Concomitant]
  3. OXYGEN [Concomitant]
  4. CALCIVIT (CEVICALCIT) [Concomitant]
  5. ROFLUMILAST (ROFLUMILAST) (TABLETS) [Suspect]
     Indication: CHRONIC OBSTRUCTIVE PULMONARY DISEASE
     Dosage: 500 MCG (500 MCG, 1 IN 1 D), ORAL
     Route: 048
     Dates: start: 20110805
  6. NEBIVOLOL HCL [Concomitant]
  7. ALBUTEROL SULFATE AUTOHALER [Concomitant]

REACTIONS (3)
  - CONDITION AGGRAVATED [None]
  - RESPIRATORY FAILURE [None]
  - CHRONIC OBSTRUCTIVE PULMONARY DISEASE [None]
